FAERS Safety Report 7063873-2 (Version None)
Quarter: 2010Q4

REPORT INFORMATION
  Report Type: 
  Country: None (occurrence: None)
  Receive Date: 20101026
  Receipt Date: 20100924
  Transmission Date: 20110411
  Serious: No
  Sender: FDA-Public Use
  Company Number: US-ABBOTT-10P-163-0673504-00

PATIENT
  Sex: Female
  Weight: 56.296 kg

DRUGS (7)
  1. LUPRON DEPOT [Suspect]
     Indication: ENDOMETRIOSIS
     Dates: start: 20100601
  2. LUPRON DEPOT [Suspect]
     Dates: start: 20010101, end: 20010101
  3. LEVOTHYROXINE [Concomitant]
     Indication: HYPOTHYROIDISM
  4. ALENDRONATE SODIUM [Concomitant]
     Indication: PRODUCT USED FOR UNKNOWN INDICATION
  5. AMITRIPTYLINE HCL [Concomitant]
     Indication: NEURALGIA
  6. ANSAID [Concomitant]
     Indication: PAIN
  7. OXYCODONE HCL [Concomitant]
     Indication: PAIN

REACTIONS (7)
  - DIARRHOEA [None]
  - DYSURIA [None]
  - HOT FLUSH [None]
  - PELVIC PAIN [None]
  - URINARY TRACT INFECTION [None]
  - VAGINAL DISCHARGE [None]
  - VAGINAL INFECTION [None]
